FAERS Safety Report 4847017-0 (Version None)
Quarter: 2005Q4

REPORT INFORMATION
  Report Type: 
  Country: None (occurrence: None)
  Receive Date: 20051201
  Receipt Date: 20051119
  Transmission Date: 20060501
  Serious: Yes (Other)
  Sender: FDA-Public Use
  Company Number: 2005157909

PATIENT
  Age: 75 Day
  Sex: Male
  Weight: 4.536 kg

DRUGS (1)
  1. BENADRYL [Suspect]
     Indication: HYPERSENSITIVITY
     Dosage: 0.4ML ONCE, ORAL
     Route: 048
     Dates: start: 20051119, end: 20051119

REACTIONS (3)
  - HEART RATE INCREASED [None]
  - NASAL CONGESTION [None]
  - RESPIRATORY RATE INCREASED [None]
